FAERS Safety Report 8211776-X (Version None)
Quarter: 2012Q1

REPORT INFORMATION
  Report Type: 
  Country: None (occurrence: None)
  Receive Date: 20120315
  Receipt Date: 20120312
  Transmission Date: 20120608
  Serious: Yes (Other)
  Sender: FDA-Public Use
  Company Number: DE-PFIZER INC-2012064132

PATIENT
  Age: 79 Year
  Sex: Female

DRUGS (1)
  1. QUINAPRIL HCL [Suspect]
     Indication: HYPERTENSION
     Dosage: 10 MG, UNK
     Route: 048
     Dates: start: 20060201

REACTIONS (1)
  - ANAEMIA [None]
